FAERS Safety Report 7775133-2 (Version None)
Quarter: 2011Q3

REPORT INFORMATION
  Report Type: 
  Country: None (occurrence: None)
  Receive Date: 20110923
  Receipt Date: 20110913
  Transmission Date: 20111222
  Serious: Yes (Hospitalization, Other)
  Sender: FDA-Public Use
  Company Number: GB-JNJFOC-20110811437

PATIENT
  Sex: Male
  Weight: 102 kg

DRUGS (7)
  1. AMITRIPTYLINE HCL [Concomitant]
     Indication: DEPRESSION
     Route: 065
  2. PREZISTA [Suspect]
     Indication: HIV INFECTION
     Dosage: PRIOR TO 2009
     Route: 048
  3. PRAVASTATIN [Concomitant]
     Indication: HYPERCHOLESTEROLAEMIA
     Route: 065
  4. RITONAVIR [Concomitant]
     Indication: HIV INFECTION
     Route: 065
     Dates: start: 20090101
  5. TRUVADA [Concomitant]
     Indication: HIV INFECTION
     Route: 065
     Dates: start: 20090101
  6. ASPIRIN [Concomitant]
     Indication: PROPHYLAXIS
     Route: 065
  7. ESOMEPRAZOLE SODIUM [Concomitant]
     Indication: GASTROOESOPHAGEAL REFLUX DISEASE
     Route: 065

REACTIONS (1)
  - NEPHROLITHIASIS [None]
